FAERS Safety Report 18469007 (Version 2)
Quarter: 2024Q1

REPORT INFORMATION
  Report Type: Spontaneous
  Country: CA (occurrence: None)
  Receive Date: 20201105
  Receipt Date: 20240227
  Transmission Date: 20240410
  Serious: Yes (Hospitalization, Other)
  Sender: FDA-Public Use
  Company Number: 2020SF42371

PATIENT
  Age: 84 Year
  Sex: Female

DRUGS (12)
  1. ESOMEPRAZOLE [Suspect]
     Active Substance: ESOMEPRAZOLE
     Route: 048
  2. LEFLUNOMIDE [Suspect]
     Active Substance: LEFLUNOMIDE
     Route: 065
  3. LEFLUNOMIDE [Suspect]
     Active Substance: LEFLUNOMIDE
     Route: 065
  4. ATORVASTATIN CALCIUM [Concomitant]
     Active Substance: ATORVASTATIN CALCIUM
     Route: 065
  5. CALCIUM CARBONATE\CHOLECALCIFEROL [Concomitant]
     Active Substance: CALCIUM CARBONATE\CHOLECALCIFEROL
     Route: 065
  6. DILTIAZEM [Concomitant]
     Active Substance: DILTIAZEM
     Route: 065
  7. FUROSEMIDE [Concomitant]
     Active Substance: FUROSEMIDE
     Route: 065
  8. METFORMIN [Concomitant]
     Active Substance: METFORMIN HYDROCHLORIDE
     Route: 065
  9. PREDNISONE [Concomitant]
     Active Substance: PREDNISONE
     Route: 065
  10. RISEDRONATE SODIUM [Concomitant]
     Active Substance: RISEDRONATE SODIUM
     Route: 065
  11. SOLIFENACIN [Concomitant]
     Active Substance: SOLIFENACIN
     Route: 065
  12. VITAMINS NOS [Concomitant]
     Active Substance: VITAMINS
     Route: 065

REACTIONS (12)
  - Acute kidney injury [Recovered/Resolved]
  - Colitis [Recovered/Resolved]
  - Dehydration [Recovered/Resolved]
  - Diarrhoea [Recovered/Resolved]
  - Electrolyte imbalance [Recovered/Resolved]
  - Fall [Unknown]
  - Haematochezia [Recovered/Resolved]
  - Hypokalaemia [Recovered/Resolved]
  - Hypomagnesaemia [Not Recovered/Not Resolved]
  - Hypophosphataemia [Recovered/Resolved]
  - Loss of consciousness [Recovered/Resolved]
  - Weight decreased [Recovered/Resolved]
